FAERS Safety Report 16341633 (Version 1)
Quarter: 2019Q2

REPORT INFORMATION
  Report Type: Report from Study
  Country: None (occurrence: RO)
  Receive Date: 20190522
  Receipt Date: 20190522
  Transmission Date: 20190711
  Serious: Yes (Other)
  Sender: FDA-Public Use
  Company Number: RO-ABBVIE-19S-135-2789735-00

PATIENT
  Age: 79 Year
  Sex: Female

DRUGS (3)
  1. DUODOPA [Suspect]
     Active Substance: CARBIDOPA\LEVODOPA
     Indication: PARKINSON^S DISEASE
     Dosage: DM=7.50, DC=3.90, ED=4.00, NRED=3;?DMN=0.00, DCN=0.00, EDN=0.00, NREDN=0
     Route: 050
     Dates: start: 20130301
  2. NITROMINT [Concomitant]
     Active Substance: NITROGLYCERIN
     Indication: ISCHAEMIC CARDIOMYOPATHY
     Route: 048
  3. ISICOM [Concomitant]
     Active Substance: CARBIDOPA\LEVODOPA
     Indication: PARKINSON^S DISEASE
     Route: 048

REACTIONS (2)
  - Dementia [Not Recovered/Not Resolved]
  - Escherichia urinary tract infection [Recovering/Resolving]

NARRATIVE: CASE EVENT DATE: 20190505
